FAERS Safety Report 9090587 (Version 2)
Quarter: 2014Q1

REPORT INFORMATION
  Report Type: Spontaneous
  Country: US (occurrence: US)
  Receive Date: 20130201
  Receipt Date: 20140204
  Transmission Date: 20141002
  Serious: No
  Sender: FDA-Public Use
  Company Number: US-GALDERMA-US12415801

PATIENT
  Age: 20 Year
  Sex: Male

DRUGS (7)
  1. EPIDUO (ADAPALENE, BENZOYL PEROXIDE) GEL 0.1% / 2.5% [Suspect]
     Indication: ACNE
     Route: 061
     Dates: start: 201205
  2. EPIDUO (ADAPALENE, BENZOYL PEROXIDE) GEL 0.1% / 2.5% [Suspect]
     Route: 061
  3. CETAPHIL MOISTURIZING LOTION [Suspect]
     Indication: DRY SKIN PROPHYLAXIS
     Dosage: AS NEEDED
     Route: 061
     Dates: start: 201205
  4. BENZOYL PEROXIDE (BENZOYL PEROXIDE) [Suspect]
     Indication: ACNE
     Route: 061
     Dates: start: 201205
  5. REMERON [Concomitant]
     Route: 048
     Dates: start: 201207
  6. ZOLOFT [Concomitant]
     Route: 048
     Dates: start: 201207
  7. CLONAZEPAM [Concomitant]
     Route: 048
     Dates: start: 201207

REACTIONS (2)
  - Erythema [Not Recovered/Not Resolved]
  - Sunburn [Unknown]
